FAERS Safety Report 9189807 (Version 2)
Quarter: 2013Q2

REPORT INFORMATION
  Report Type: Spontaneous
  Country: JP (occurrence: JP)
  Receive Date: 20130326
  Receipt Date: 20130403
  Transmission Date: 20140414
  Serious: Yes (Other)
  Sender: FDA-Public Use
  Company Number: JP-PFIZER INC-2013096775

PATIENT
  Age: 56 Year
  Sex: Female

DRUGS (2)
  1. NORVASC [Suspect]
     Dosage: 2.5 MG, 1X/DAY
     Route: 048
  2. NITOROL [Concomitant]

REACTIONS (2)
  - Renal impairment [Recovering/Resolving]
  - Blood uric acid increased [Recovering/Resolving]
